FAERS Safety Report 20618314 (Version 2)
Quarter: 2022Q1

REPORT INFORMATION
  Report Type: Report from Study
  Country: CA (occurrence: CA)
  Receive Date: 20220321
  Receipt Date: 20220330
  Transmission Date: 20220424
  Serious: Yes (Hospitalization)
  Sender: FDA-Public Use
  Company Number: CA-HLS-202200597

PATIENT
  Age: 53 Year
  Sex: Female

DRUGS (2)
  1. CLOZARIL [Suspect]
     Active Substance: CLOZAPINE
     Indication: Schizophrenia
     Route: 048
     Dates: start: 20071203, end: 20211124
  2. HUMIRA [Concomitant]
     Active Substance: ADALIMUMAB
     Indication: Product used for unknown indication
     Route: 065

REACTIONS (1)
  - Immunoglobulins decreased [Unknown]

NARRATIVE: CASE EVENT DATE: 20220220
